FAERS Safety Report 4945812-0 (Version None)
Quarter: 2006Q1

REPORT INFORMATION
  Report Type: 
  Country: None (occurrence: None)
  Receive Date: 20060316
  Receipt Date: 20051116
  Transmission Date: 20060701
  Serious: Yes (Death, Hospitalization, Other)
  Sender: FDA-Public Use
  Company Number: 2005AP05964

PATIENT
  Age: 23579 Day
  Sex: Female
  Weight: 41 kg

DRUGS (13)
  1. IRESSA [Suspect]
     Indication: LUNG ADENOCARCINOMA STAGE III
     Route: 048
     Dates: start: 20041021, end: 20050419
  2. GEMZAR [Suspect]
     Indication: LUNG NEOPLASM MALIGNANT
     Route: 042
     Dates: start: 20050524, end: 20050524
  3. GEMZAR [Suspect]
     Route: 042
     Dates: start: 20050531, end: 20050531
  4. GEMZAR [Suspect]
     Route: 042
     Dates: start: 20050614, end: 20050614
  5. GEMZAR [Suspect]
     Route: 042
     Dates: start: 20050621, end: 20050621
  6. NAVELBINE [Suspect]
     Indication: LUNG NEOPLASM MALIGNANT
     Route: 042
     Dates: start: 20050524, end: 20050524
  7. NAVELBINE [Suspect]
     Route: 042
     Dates: start: 20050531, end: 20050531
  8. NAVELBINE [Suspect]
     Route: 042
     Dates: start: 20050614, end: 20050614
  9. NAVELBINE [Suspect]
     Route: 042
     Dates: start: 20050621, end: 20050621
  10. CEFOTAX [Suspect]
     Indication: URINARY TRACT INFECTION
     Dates: start: 20050705, end: 20050705
  11. AZACTAM [Suspect]
     Indication: URINARY TRACT INFECTION
     Dates: start: 20050705, end: 20050707
  12. CODEINE PHOSPHATE [Concomitant]
     Indication: COUGH
     Route: 048
     Dates: start: 20041019, end: 20041130
  13. NAVOBAN [Concomitant]
     Indication: PALLIATIVE CARE
     Route: 048
     Dates: start: 20050525, end: 20050528

REACTIONS (8)
  - ALANINE AMINOTRANSFERASE INCREASED [None]
  - ANAPHYLACTIC SHOCK [None]
  - ASPARTATE AMINOTRANSFERASE INCREASED [None]
  - INTERSTITIAL LUNG DISEASE [None]
  - LIVER DISORDER [None]
  - RASH [None]
  - STAPHYLOCOCCAL INFECTION [None]
  - URINARY TRACT INFECTION [None]
